FAERS Safety Report 6009104-3 (Version None)
Quarter: 2008Q4

REPORT INFORMATION
  Report Type: 
  Country: None (occurrence: None)
  Receive Date: 20081216
  Receipt Date: 20081215
  Transmission Date: 20090506
  Serious: Yes (Hospitalization)
  Sender: FDA-Public Use
  Company Number: GRT 2008-13845

PATIENT
  Age: 80 Year
  Sex: Male
  Weight: 66 kg

DRUGS (7)
  1. LIDOCAINE [Suspect]
     Dosage: 3 PATCHES A DAY
     Dates: start: 20080929
  2. LYRICA [Concomitant]
  3. OXYCONTIN [Concomitant]
  4. TRAMADOL HYDROCHLORIDE [Concomitant]
  5. DULOXETINE [Concomitant]
  6. DIGOXIN [Concomitant]
  7. TAMSULOSIN HCL [Concomitant]

REACTIONS (2)
  - CONFUSIONAL STATE [None]
  - PNEUMONIA [None]
